FAERS Safety Report 14379640 (Version 2)
Quarter: 2018Q1

REPORT INFORMATION
  Report Type: Spontaneous
  Country: FR (occurrence: FR)
  Receive Date: 20180112
  Receipt Date: 20180130
  Transmission Date: 20180509
  Serious: Yes (Hospitalization)
  Sender: FDA-Public Use
  Company Number: FR-CIPLA LTD.-2018FR00112

PATIENT

DRUGS (5)
  1. CIFLOX                             /00697201/ [Suspect]
     Active Substance: CIPROFLOXACIN
     Indication: LUNG INFECTION
     Dosage: 1000 MG, UNK
     Route: 048
     Dates: start: 20171026
  2. BUDESONIDE. [Suspect]
     Active Substance: BUDESONIDE
     Indication: LUNG INFECTION
     Dosage: UNK
     Route: 055
     Dates: start: 20171019
  3. AMBROXOL [Suspect]
     Active Substance: AMBROXOL
     Indication: LUNG INFECTION
     Dosage: UNK
     Route: 048
     Dates: start: 20171019
  4. AUGMENTIN [Suspect]
     Active Substance: AMOXICILLIN\CLAVULANATE POTASSIUM
     Indication: LUNG INFECTION
     Dosage: 2 G, UNK
     Route: 048
     Dates: start: 20171019, end: 20171026
  5. FORMOTEROL [Suspect]
     Active Substance: FORMOTEROL
     Indication: LUNG INFECTION
     Dosage: UNK
     Route: 055
     Dates: start: 20171019

REACTIONS (2)
  - Anaemia [Recovered/Resolved]
  - Neutropenia [Recovered/Resolved]

NARRATIVE: CASE EVENT DATE: 20171027
